FAERS Safety Report 5319587-X (Version None)
Quarter: 2007Q2

REPORT INFORMATION
  Report Type: 
  Country: None (occurrence: None)
  Receive Date: 20070508
  Receipt Date: 20070426
  Transmission Date: 20071010
  Serious: Yes (Other)
  Sender: FDA-Public Use
  Company Number: US-PFIZER INC-2007035123

PATIENT
  Sex: Female
  Weight: 61.363 kg

DRUGS (5)
  1. CHANTIX [Suspect]
     Indication: SMOKING CESSATION THERAPY
     Dates: start: 20070317, end: 20070412
  2. OPIOIDS [Suspect]
  3. VICODIN [Concomitant]
  4. NORCO [Concomitant]
  5. NEXIUM [Concomitant]

REACTIONS (7)
  - ABASIA [None]
  - AGEUSIA [None]
  - ANOSMIA [None]
  - DRUG WITHDRAWAL SYNDROME [None]
  - HYPERTENSION [None]
  - MEMORY IMPAIRMENT [None]
  - WEIGHT INCREASED [None]
